FAERS Safety Report 13577661 (Version 1)
Quarter: 2017Q2

REPORT INFORMATION
  Report Type: Spontaneous
  Country: DE (occurrence: DE)
  Receive Date: 20170524
  Receipt Date: 20170524
  Transmission Date: 20170830
  Serious: Yes (Other)
  Sender: FDA-Public Use
  Company Number: DE-BAUSCH-BL-2017-017170

PATIENT
  Age: 75 Year
  Sex: Male

DRUGS (1)
  1. DEXAMETHASONE. [Suspect]
     Active Substance: DEXAMETHASONE
     Indication: PLASMA CELL MYELOMA
     Dosage: ON DAY 1-4, 8-11, AND 15-18
     Route: 065

REACTIONS (5)
  - Insomnia [Unknown]
  - Weight increased [Unknown]
  - Infection [Unknown]
  - Oedema [Unknown]
  - Agitation [Unknown]
